FAERS Safety Report 14973055 (Version 1)
Quarter: 2018Q2

REPORT INFORMATION
  Report Type: Spontaneous
  Country: US (occurrence: US)
  Receive Date: 20180514
  Receipt Date: 20180514
  Transmission Date: 20180711
  Serious: No
  Sender: FDA-Public Use
  Company Number: None

PATIENT
  Age: 3 Year
  Sex: Female

DRUGS (2)
  1. VIGABATRIN POWDER 500MG PAR [Suspect]
     Active Substance: VIGABATRIN
     Indication: CENTRAL NERVOUS SYSTEM NEOPLASM
     Dosage: OTHER FREQUENCY:500MG IN THE AM AND 750 MG IN THE PM; BY MOUTH
     Route: 048
     Dates: start: 20180426, end: 20180511
  2. VIGABATRIN POWDER 500MG PAR [Suspect]
     Active Substance: VIGABATRIN
     Indication: INFANTILE SPASMS
     Dosage: OTHER FREQUENCY:500MG IN THE AM AND 750 MG IN THE PM; BY MOUTH
     Route: 048
     Dates: start: 20180426, end: 20180511

REACTIONS (3)
  - Aggression [None]
  - Abnormal behaviour [None]
  - Product substitution issue [None]

NARRATIVE: CASE EVENT DATE: 20180511
